FAERS Safety Report 26055372 (Version 2)
Quarter: 2025Q4

REPORT INFORMATION
  Report Type: Spontaneous
  Country: JP (occurrence: JP)
  Receive Date: 20251117
  Receipt Date: 20251201
  Transmission Date: 20260118
  Serious: Yes (Death)
  Sender: EISAI
  Company Number: JP-Eisai-202510408_LEN-RCC_P_1

PATIENT
  Age: 78 Year
  Sex: Male

DRUGS (2)
  1. LENVATINIB [Suspect]
     Active Substance: LENVATINIB
     Indication: Metastatic renal cell carcinoma
     Dosage: DOSE AND FREQUENCY UNKNOWN
     Route: 048
  2. PEMBROLIZUMAB [Concomitant]
     Active Substance: PEMBROLIZUMAB
     Indication: Metastatic renal cell carcinoma
     Dosage: DOSE AND FREQUENCY UNKNOWN
     Route: 041

REACTIONS (5)
  - Immune-mediated myocarditis [Fatal]
  - Immune-mediated myositis [Fatal]
  - Eyelid ptosis [Fatal]
  - Eye movement disorder [Fatal]
  - Hypercapnia [Fatal]
